FAERS Safety Report 8530679-4 (Version None)
Quarter: 2012Q3

REPORT INFORMATION
  Report Type: 
  Country: None (occurrence: None)
  Receive Date: 20120723
  Receipt Date: 20120709
  Transmission Date: 20120928
  Serious: Yes (Other)
  Sender: FDA-Public Use
  Company Number: US-ENDO PHARMACEUTICALS INC.-OPCR20121606

PATIENT
  Sex: Female

DRUGS (2)
  1. OPANA ER [Suspect]
     Indication: PAIN
     Dosage: UNK
     Route: 048
     Dates: start: 20120101
  2. OPANA ER [Concomitant]
     Dosage: UNK
     Route: 048
     Dates: end: 20120101

REACTIONS (3)
  - INTESTINAL OBSTRUCTION [None]
  - DRUG INEFFECTIVE [None]
  - ABDOMINAL PAIN [None]
